FAERS Safety Report 18510558 (Version 1)
Quarter: 2020Q4

REPORT INFORMATION
  Report Type: Spontaneous
  Country: US (occurrence: US)
  Receive Date: 20201116
  Receipt Date: 20201116
  Transmission Date: 20210114
  Serious: No
  Sender: FDA-Public Use
  Company Number: None

PATIENT
  Age: 86 Year
  Sex: Male
  Weight: 65.7 kg

DRUGS (6)
  1. OMEPRAZOLE. [Concomitant]
     Active Substance: OMEPRAZOLE
  2. FOLIC ACID. [Concomitant]
     Active Substance: FOLIC ACID
  3. VITAMIN B12 [Concomitant]
     Active Substance: CYANOCOBALAMIN
  4. LISINOPRIL. [Concomitant]
     Active Substance: LISINOPRIL
  5. ZELBORAF [Suspect]
     Active Substance: VEMURAFENIB
     Indication: RECTAL CANCER
     Route: 048
     Dates: start: 20201013, end: 20201116
  6. METFORMIN HCL [Concomitant]
     Active Substance: METFORMIN HYDROCHLORIDE

REACTIONS (1)
  - Arthralgia [None]

NARRATIVE: CASE EVENT DATE: 20201116
